FAERS Safety Report 8381516-2 (Version None)
Quarter: 2012Q2

REPORT INFORMATION
  Report Type: 
  Country: None (occurrence: None)
  Receive Date: 20120523
  Receipt Date: 20120419
  Transmission Date: 20120825
  Serious: Yes (Other)
  Sender: FDA-Public Use
  Company Number: CA-ROCHE-1060381

PATIENT
  Sex: Male
  Weight: 112.5 kg

DRUGS (7)
  1. PANTOPRAZOLE [Concomitant]
  2. GAVISCON ACID [Concomitant]
  3. AVASTIN [Suspect]
     Indication: COLORECTAL CANCER
     Route: 042
     Dates: start: 20110518
  4. IMODIUM [Concomitant]
  5. PROCHLORPERAZINE [Concomitant]
  6. INSULIN [Concomitant]
  7. DEXAMETHASONE SODIUM PHOSPHATE [Concomitant]
     Dates: start: 20120201, end: 20120301

REACTIONS (12)
  - GAMMA-GLUTAMYLTRANSFERASE INCREASED [None]
  - POLLAKIURIA [None]
  - TYPE 1 DIABETES MELLITUS [None]
  - THIRST [None]
  - ASPARTATE AMINOTRANSFERASE INCREASED [None]
  - CARBOHYDRATE ANTIGEN 19-9 INCREASED [None]
  - RED CELL DISTRIBUTION WIDTH INCREASED [None]
  - CARCINOEMBRYONIC ANTIGEN INCREASED [None]
  - RED BLOOD CELL COUNT DECREASED [None]
  - BLOOD SODIUM DECREASED [None]
  - BLOOD LACTATE DEHYDROGENASE INCREASED [None]
  - LYMPHOCYTE COUNT DECREASED [None]
